FAERS Safety Report 25751977 (Version 1)
Quarter: 2025Q3

REPORT INFORMATION
  Report Type: Spontaneous
  Country: BR (occurrence: BR)
  Receive Date: 20250902
  Receipt Date: 20250902
  Transmission Date: 20251021
  Serious: Yes (Other)
  Sender: SANDOZ
  Company Number: BR-SANDOZ-SDZ2025BR062666

PATIENT
  Sex: Female

DRUGS (2)
  1. LOSARTAN [Suspect]
     Active Substance: LOSARTAN
     Indication: Hypertension
     Route: 065
  2. RIBOCICLIB [Suspect]
     Active Substance: RIBOCICLIB
     Indication: Product used for unknown indication
     Route: 065

REACTIONS (6)
  - Neoplasm malignant [Unknown]
  - Dysphonia [Recovering/Resolving]
  - Nasopharyngitis [Recovering/Resolving]
  - Abdominal pain upper [Recovering/Resolving]
  - Dizziness [Not Recovered/Not Resolved]
  - Cough [Recovering/Resolving]
